FAERS Safety Report 17418625 (Version 1)
Quarter: 2020Q1

REPORT INFORMATION
  Report Type: Spontaneous
  Country: US (occurrence: US)
  Receive Date: 20200131
  Receipt Date: 20200131
  Transmission Date: 20200409
  Serious: No
  Sender: FDA-Public Use
  Company Number: None

PATIENT
  Sex: Female

DRUGS (1)
  1. LEUPROLIDE ACET 2-WEEK [Suspect]
     Active Substance: LEUPROLIDE ACETATE
     Indication: INFERTILITY FEMALE
     Dosage: ?          OTHER STRENGTH:1MG/0.2ML;OTHER DOSE:1MG/0.2ML;?
     Route: 058
     Dates: start: 20200108

REACTIONS (1)
  - Unevaluable event [None]
